FAERS Safety Report 15799571 (Version 4)
Quarter: 2020Q2

REPORT INFORMATION
  Report Type: Spontaneous
  Country: AU (occurrence: AU)
  Receive Date: 20190108
  Receipt Date: 20200409
  Transmission Date: 20200713
  Serious: Yes (Other)
  Sender: FDA-Public Use
  Company Number: AU-009507513-1901AUS000719

PATIENT
  Sex: Male

DRUGS (3)
  1. KEYTRUDA [Suspect]
     Active Substance: PEMBROLIZUMAB
     Indication: METASTATIC MALIGNANT MELANOMA
  2. KEYTRUDA [Suspect]
     Active Substance: PEMBROLIZUMAB
     Indication: METASTASES TO CENTRAL NERVOUS SYSTEM
  3. KEYTRUDA [Suspect]
     Active Substance: PEMBROLIZUMAB
     Indication: METASTASES TO SPLEEN
     Dosage: 12 CYCLES

REACTIONS (6)
  - Bone marrow failure [Unknown]
  - Autoimmune hypothyroidism [Unknown]
  - Metastatic malignant melanoma [Unknown]
  - Bone marrow infiltration [Unknown]
  - Pancytopenia [Unknown]
  - Thrombocytopenia [Unknown]
